FAERS Safety Report 6886108-X (Version None)
Quarter: 2010Q3

REPORT INFORMATION
  Report Type: 
  Country: None (occurrence: None)
  Receive Date: 20100729
  Receipt Date: 20090123
  Transmission Date: 20110219
  Serious: Yes (Hospitalization, Other)
  Sender: FDA-Public Use
  Company Number: US-PFIZER INC-2008093948

PATIENT
  Sex: Male

DRUGS (2)
  1. CELEBREX [Suspect]
     Indication: ANALGESIC THERAPY
     Dosage: 200 MG, UNK
  2. ATENOLOL [Concomitant]
     Dosage: 25 MG, UNK
     Dates: start: 20020201

REACTIONS (3)
  - CEREBROVASCULAR ACCIDENT [None]
  - HYPERTENSION [None]
  - TYPE 2 DIABETES MELLITUS [None]
